FAERS Safety Report 9752481 (Version 4)
Quarter: 2014Q1

REPORT INFORMATION
  Report Type: Report from Study
  Country: JP (occurrence: JP)
  Receive Date: 20131213
  Receipt Date: 20140307
  Transmission Date: 20141002
  Serious: Yes (Other)
  Sender: FDA-Public Use
  Company Number: JP-ROCHE-1315632

PATIENT
  Age: 69 Year
  Sex: Male
  Weight: 73 kg

DRUGS (11)
  1. METHOXY POLYETHYLENE GLYCOL-EPOETIN BETA [Suspect]
     Indication: NEPHROGENIC ANAEMIA
     Route: 058
     Dates: start: 20121129, end: 20130425
  2. METHOXY POLYETHYLENE GLYCOL-EPOETIN BETA [Suspect]
     Indication: NEPHROGENIC ANAEMIA
     Route: 058
     Dates: start: 20130523
  3. CORINAEL [Concomitant]
     Dosage: DRUG REPORTED AS : CORINAEL CR
     Route: 048
     Dates: end: 20130213
  4. CONIEL [Concomitant]
     Route: 048
  5. NIFEDIPINE CR [Concomitant]
     Route: 048
     Dates: start: 20130214
  6. GOODMIN [Concomitant]
     Dosage: SINGLE USE
     Route: 048
     Dates: start: 20130228
  7. TRANSAMIN [Concomitant]
     Route: 048
     Dates: start: 20130228, end: 20130828
  8. TRANSAMIN [Concomitant]
     Route: 048
     Dates: start: 20130829
  9. D-ALFA [Concomitant]
     Route: 048
     Dates: end: 20130829
  10. D-ALFA [Concomitant]
     Route: 048
     Dates: start: 20130926
  11. FALECALCITRIOL [Concomitant]
     Dosage: DRUG REPORTED AS : FULSTAN
     Route: 048
     Dates: start: 20131024

REACTIONS (5)
  - Cataract [Recovering/Resolving]
  - Optic neuritis [Recovering/Resolving]
  - Duodenal ulcer [Recovering/Resolving]
  - Large intestine polyp [Unknown]
  - Haemorrhoids [Unknown]
